FAERS Safety Report 8220512-2 (Version None)
Quarter: 2012Q1

REPORT INFORMATION
  Report Type: 
  Country: None (occurrence: None)
  Receive Date: 20120320
  Receipt Date: 20120312
  Transmission Date: 20120608
  Serious: Yes (Hospitalization)
  Sender: FDA-Public Use
  Company Number: US-BAYER-2011-089569

PATIENT
  Age: 37 Year
  Sex: Female
  Weight: 108.84 kg

DRUGS (2)
  1. YASMIN [Suspect]
     Indication: CONTRACEPTION
     Dosage: UNK
     Dates: start: 20070101, end: 20070601
  2. SYNTHROID [Concomitant]
     Indication: THYROIDECTOMY
     Dosage: 0.2 MG ,DAILY,  UNK
     Dates: start: 19920101

REACTIONS (4)
  - CHOLECYSTECTOMY [None]
  - PAIN [None]
  - INJURY [None]
  - EMOTIONAL DISTRESS [None]
